FAERS Safety Report 24564278 (Version 2)
Quarter: 2024Q4

REPORT INFORMATION
  Report Type: Spontaneous
  Country: DE (occurrence: DE)
  Receive Date: 20241030
  Receipt Date: 20241129
  Transmission Date: 20250115
  Serious: Yes (Death, Other)
  Sender: AUROBINDO
  Company Number: DE-009507513-2410DEU004615

PATIENT
  Sex: Female
  Weight: 64.7 kg

DRUGS (3)
  1. CARBOPLATIN [Suspect]
     Active Substance: CARBOPLATIN
     Indication: Non-small cell lung cancer
     Dosage: 520 MG, UNK, 1ST LINE
     Route: 065
     Dates: start: 20240803, end: 20240803
  2. PEMETREXED [Suspect]
     Active Substance: PEMETREXED
     Indication: Non-small cell lung cancer
     Dosage: 700 MG, UNK, 1ST LINE
     Route: 065
     Dates: start: 20240803, end: 20240803
  3. PEMBROLIZUMAB [Suspect]
     Active Substance: PEMBROLIZUMAB
     Indication: Non-small cell lung cancer
     Dosage: 200 MG, UNK, 1ST LINE
     Route: 065
     Dates: start: 20240619, end: 20240803

REACTIONS (3)
  - Pneumonitis [Fatal]
  - Malignant neoplasm progression [Unknown]
  - Infection [Unknown]

NARRATIVE: CASE EVENT DATE: 20240827
